FAERS Safety Report 13847486 (Version 3)
Quarter: 2018Q2

REPORT INFORMATION
  Report Type: Report from Study
  Country: TW (occurrence: TW)
  Receive Date: 20170808
  Receipt Date: 20180523
  Transmission Date: 20180711
  Serious: Yes (Hospitalization, Other)
  Sender: FDA-Public Use
  Company Number: TW-UCBSA-2017028460

PATIENT
  Sex: Female
  Weight: 58 kg

DRUGS (17)
  1. LACOSAMIDE. [Suspect]
     Active Substance: LACOSAMIDE
     Dosage: 100 MG, 2X/DAY (BID)
     Route: 048
     Dates: start: 20170806, end: 20170823
  2. ATIVAN [Concomitant]
     Active Substance: LORAZEPAM
     Indication: SEIZURE
     Dosage: UNK, AS NEEDED (PRN)
  3. DULOXETINE. [Concomitant]
     Active Substance: DULOXETINE
     Indication: MAJOR DEPRESSION
     Dosage: 60 MG, 2X/DAY (BID)
     Route: 048
     Dates: start: 20160530
  4. LITHIUM CARBONATE. [Concomitant]
     Active Substance: LITHIUM CARBONATE
     Indication: BIPOLAR DISORDER
     Dosage: 300 MG, 3X/DAY (TID)
     Route: 048
     Dates: start: 20170626
  5. LORAZEPAM. [Concomitant]
     Active Substance: LORAZEPAM
     Indication: ANXIETY
     Dosage: 2 MG, UNK
     Route: 048
     Dates: start: 20170628
  6. LACOSAMIDE. [Suspect]
     Active Substance: LACOSAMIDE
     Dosage: 50 MG, 2X/DAY (BID)
     Route: 048
     Dates: start: 20170619, end: 20170705
  7. SODIUM VALPROATE [Concomitant]
     Active Substance: VALPROATE SODIUM
     Indication: EPILEPSY
     Dosage: 500 MG, 2X/DAY (BID)
     Route: 048
     Dates: start: 20170824
  8. IBUPROFEN. [Concomitant]
     Active Substance: IBUPROFEN
     Indication: PRODUCT USED FOR UNKNOWN INDICATION
  9. OLANZAPINE. [Concomitant]
     Active Substance: OLANZAPINE
     Indication: PRODUCT USED FOR UNKNOWN INDICATION
     Dosage: 10MG PER DAY AND TITRATED TO 15MG PERDAY
  10. LACOSAMIDE. [Suspect]
     Active Substance: LACOSAMIDE
     Dosage: 100 MG, 2X/DAY (BID)
     Route: 048
     Dates: start: 20170618, end: 20170618
  11. ARIPIPRAZOLE. [Concomitant]
     Active Substance: ARIPIPRAZOLE
     Indication: MAJOR DEPRESSION
     Dosage: 15 MG, 2X/DAY (BID)
     Route: 048
     Dates: start: 20161205
  12. LACOSAMIDE. [Suspect]
     Active Substance: LACOSAMIDE
     Indication: EPILEPSY
     Dosage: 50 MG, 2X/DAY (BID)
     Route: 048
     Dates: start: 20170504, end: 20170617
  13. BETHANECHOL [Concomitant]
     Active Substance: BETHANECHOL
     Indication: URINARY RETENTION
     Dosage: 25 MG, AS NEEDED (PRN)
     Dates: start: 20170921
  14. LACOSAMIDE. [Suspect]
     Active Substance: LACOSAMIDE
     Dosage: 100 MG, 3X/DAY (TID)
     Route: 048
     Dates: start: 20170824
  15. ARTANE [Suspect]
     Active Substance: TRIHEXYPHENIDYL HYDROCHLORIDE
     Indication: PRODUCT USED FOR UNKNOWN INDICATION
     Dosage: 20 PCS
     Dates: start: 20170624
  16. LAMOTRIGINE. [Concomitant]
     Active Substance: LAMOTRIGINE
     Indication: EPILEPSY
     Dosage: 200 MG, 2X/DAY (BID)
     Route: 048
     Dates: start: 20160307
  17. TOPIRAMATE. [Concomitant]
     Active Substance: TOPIRAMATE
     Indication: EPILEPSY
     Dosage: 200 MG, 2X/DAY (BID)
     Route: 048
     Dates: start: 20050319

REACTIONS (15)
  - Aggression [Unknown]
  - Loss of consciousness [Recovered/Resolved]
  - Suicide attempt [Recovering/Resolving]
  - Impulse-control disorder [Recovered/Resolved]
  - Personality disorder [Unknown]
  - Suicidal ideation [Recovered/Resolved]
  - Soliloquy [Unknown]
  - Seizure [Recovered/Resolved]
  - Psychomotor hyperactivity [Not Recovered/Not Resolved]
  - Dizziness [Recovered/Resolved]
  - Off label use [Unknown]
  - Psychotic disorder [Recovering/Resolving]
  - Parent-child problem [Unknown]
  - Headache [Unknown]
  - Depression [Recovered/Resolved]

NARRATIVE: CASE EVENT DATE: 2017
